FAERS Safety Report 4984577-3 (Version None)
Quarter: 2006Q2

REPORT INFORMATION
  Report Type: 
  Country: None (occurrence: None)
  Receive Date: 20060420
  Receipt Date: 20060411
  Transmission Date: 20061013
  Serious: Yes (Other)
  Sender: FDA-Public Use
  Company Number: 802#1#2006-00001

PATIENT
  Age: 82 Year
  Sex: Male

DRUGS (4)
  1. SUGIRAN (ALPROSTADIL (PAOD) ) [Suspect]
     Indication: ARTERIOPATHIC DISEASE
     Dosage: 3 AMP./DAY INTRAVENOUS
     Route: 042
     Dates: start: 20060109, end: 20060203
  2. TRIFLUSAL (TRIFLUSAL) [Concomitant]
  3. ENALAPRIL MALEATE [Concomitant]
  4. PIRETANIDE (PIRETANIDE) [Concomitant]

REACTIONS (2)
  - INFUSION SITE PHLEBITIS [None]
  - PAIN IN EXTREMITY [None]
